FAERS Safety Report 20119734 (Version 6)
Quarter: 2025Q2

REPORT INFORMATION
  Report Type: Spontaneous
  Country: JP (occurrence: JP)
  Receive Date: 20211126
  Receipt Date: 20250410
  Transmission Date: 20250716
  Serious: Yes (Death, Other)
  Sender: JAZZ
  Company Number: JP-JAZZ-2021-JP-020706

PATIENT
  Age: 61 Year
  Sex: Male
  Weight: 54.9 kg

DRUGS (3)
  1. DEFITELIO [Suspect]
     Active Substance: DEFIBROTIDE SODIUM
     Indication: Venoocclusive liver disease
     Route: 042
  2. DEFITELIO [Suspect]
     Active Substance: DEFIBROTIDE SODIUM
     Dosage: 350 MILLIGRAM, QD
     Route: 042
     Dates: start: 20211010, end: 20211102
  3. DEFITELIO [Suspect]
     Active Substance: DEFIBROTIDE SODIUM
     Dosage: 25 MILLIGRAM/KILOGRAM, QD
     Route: 042
     Dates: start: 20211010, end: 20211102

REACTIONS (5)
  - Venoocclusive liver disease [Fatal]
  - Chronic myeloid leukaemia [Fatal]
  - Multiple organ dysfunction syndrome [Fatal]
  - Renal impairment [Unknown]
  - Human herpesvirus 6 encephalitis [Unknown]

NARRATIVE: CASE EVENT DATE: 20211010
